FAERS Safety Report 24801628 (Version 2)
Quarter: 2025Q1

REPORT INFORMATION
  Report Type: Spontaneous
  Country: US (occurrence: US)
  Receive Date: 20250102
  Receipt Date: 20250318
  Transmission Date: 20250409
  Serious: Yes (Other)
  Sender: PFIZER
  Company Number: US-PFIZER INC-PV202400168481

PATIENT
  Age: 84 Year
  Sex: Male
  Weight: 66.998 kg

DRUGS (6)
  1. IBRANCE [Suspect]
     Active Substance: PALBOCICLIB
     Indication: Non-small cell lung cancer metastatic
     Route: 048
     Dates: start: 20241126, end: 20250124
  2. ELIQUIS [Concomitant]
     Active Substance: APIXABAN
     Indication: Deep vein thrombosis
     Dosage: 5 MG, 2X/DAY (TWICE DAILY)
     Route: 048
  3. NEURONTIN [Concomitant]
     Active Substance: GABAPENTIN
     Dosage: 100 MG, 3X/DAY
     Route: 048
  4. NORCO [Concomitant]
     Active Substance: ACETAMINOPHEN\HYDROCODONE BITARTRATE
     Indication: Pain
  5. METOPROLOL SUCCINATE [Concomitant]
     Active Substance: METOPROLOL SUCCINATE
     Dosage: 100 MG, DAILY
  6. KEPPRA [Concomitant]
     Active Substance: LEVETIRACETAM
     Indication: Seizure
     Dosage: 300 MG, 2 TAB BID (TWICE A DAY)

REACTIONS (9)
  - Thrombocytopenia [Recovered/Resolved]
  - Anaemia [Recovered/Resolved]
  - Haemoglobin decreased [Recovered/Resolved]
  - Haematocrit decreased [Recovered/Resolved]
  - Mean cell volume increased [Recovered/Resolved]
  - Platelet count decreased [Recovered/Resolved]
  - Protein total decreased [Not Recovered/Not Resolved]
  - Tachycardia [Recovering/Resolving]
  - Off label use [Unknown]

NARRATIVE: CASE EVENT DATE: 20241126
